FAERS Safety Report 6507209-1 (Version None)
Quarter: 2009Q4

REPORT INFORMATION
  Report Type: 
  Country: None (occurrence: None)
  Receive Date: 20091221
  Receipt Date: 20091211
  Transmission Date: 20100525
  Serious: Yes (Hospitalization)
  Sender: FDA-Public Use
  Company Number: PHHY2009MX46212

PATIENT
  Sex: Female

DRUGS (1)
  1. DIOVAN HCT [Suspect]
     Indication: HYPERTENSION
     Dosage: ONE TABLETS (160/12.5 MG) PER DAY
     Dates: start: 20060310

REACTIONS (4)
  - DIZZINESS [None]
  - EYE HAEMORRHAGE [None]
  - FATIGUE [None]
  - LIPOMA EXCISION [None]
